FAERS Safety Report 7522490-8 (Version None)
Quarter: 2011Q2

REPORT INFORMATION
  Report Type: 
  Country: None (occurrence: None)
  Receive Date: 20110603
  Receipt Date: 20110526
  Transmission Date: 20111010
  Serious: Yes (Other)
  Sender: FDA-Public Use
  Company Number: CA-ROCHE-768950

PATIENT
  Sex: Male

DRUGS (13)
  1. HYDROXYCHLOROQUINE SULFATE [Concomitant]
  2. TOCILIZUMAB [Suspect]
     Route: 042
     Dates: start: 20110203, end: 20110203
  3. TOCILIZUMAB [Suspect]
     Route: 042
     Dates: start: 20110526
  4. METHOTREXATE [Concomitant]
  5. RAMIPRIL [Concomitant]
     Indication: BLOOD PRESSURE
  6. DICLOFENAC SODIUM [Concomitant]
     Indication: ANTIINFLAMMATORY THERAPY
  7. INFLIXIMAB [Concomitant]
  8. CELEBREX [Concomitant]
  9. TRAMADOL HYDROCHLORIDE [Concomitant]
     Indication: PAIN
  10. METFORMIN HCL [Concomitant]
  11. GLYBURIDE [Concomitant]
  12. TOCILIZUMAB [Suspect]
     Indication: RHEUMATOID ARTHRITIS
     Dosage: FORM: INFUSION
     Route: 042
     Dates: start: 20100917, end: 20100917
  13. MINOCYCLINE HCL [Concomitant]
     Indication: THERAPEUTIC PROCEDURE

REACTIONS (9)
  - CALCULUS URINARY [None]
  - CHOLELITHIASIS [None]
  - NEPHROLITHIASIS [None]
  - COUGH [None]
  - CHEST DISCOMFORT [None]
  - FEELING HOT [None]
  - HEPATOMEGALY [None]
  - DYSPNOEA [None]
  - INFLUENZA LIKE ILLNESS [None]
